FAERS Safety Report 18809423 (Version 1)
Quarter: 2021Q1

REPORT INFORMATION
  Report Type: Spontaneous
  Country: CA (occurrence: CA)
  Receive Date: 20210129
  Receipt Date: 20210129
  Transmission Date: 20210419
  Serious: Yes (Other)
  Sender: FDA-Public Use
  Company Number: CA-PURDUE-USA-2020-0201335

PATIENT
  Sex: Male

DRUGS (5)
  1. OXYCONTIN [Suspect]
     Active Substance: OXYCODONE HYDROCHLORIDE
     Indication: JOINT INJURY
     Dosage: 20 MG, Q8H
     Route: 048
     Dates: start: 200404, end: 20090107
  2. OXY IR [Suspect]
     Active Substance: OXYCODONE HYDROCHLORIDE
     Indication: LIMB INJURY
     Dosage: 10 MG, Q8H
     Route: 048
  3. METHADONE [Suspect]
     Active Substance: METHADONE HYDROCHLORIDE
     Indication: PRODUCT USED FOR UNKNOWN INDICATION
     Dosage: UNK
     Route: 065
  4. OXYCONTIN [Suspect]
     Active Substance: OXYCODONE HYDROCHLORIDE
     Indication: LIMB INJURY
     Dosage: 80 MG, Q8H
     Route: 048
  5. OXY IR [Suspect]
     Active Substance: OXYCODONE HYDROCHLORIDE
     Indication: JOINT INJURY

REACTIONS (20)
  - Anxiety [Unknown]
  - Anger [Unknown]
  - Bone pain [Unknown]
  - Cold sweat [Unknown]
  - Constipation [Unknown]
  - Depression [Unknown]
  - Weight increased [Unknown]
  - Sleep disorder [Unknown]
  - Suicidal ideation [Unknown]
  - Nausea [Unknown]
  - Drug withdrawal syndrome [Unknown]
  - Grief reaction [Unknown]
  - Tremor [Unknown]
  - Phobia [Unknown]
  - Dizziness [Unknown]
  - Rash pruritic [Unknown]
  - Mood swings [Unknown]
  - Hot flush [Unknown]
  - Drug dependence [Unknown]
  - Somnolence [Unknown]
